FAERS Safety Report 21711735 (Version 9)
Quarter: 2024Q2

REPORT INFORMATION
  Report Type: Report from Study
  Country: US (occurrence: US)
  Receive Date: 20221212
  Receipt Date: 20240512
  Transmission Date: 20240716
  Serious: Yes (Other)
  Sender: FDA-Public Use
  Company Number: US-002147023-NVSC2022US287106

PATIENT
  Sex: Female

DRUGS (2)
  1. PROMACTA [Suspect]
     Active Substance: ELTROMBOPAG OLAMINE
     Indication: Platelet count decreased
     Dosage: 50 MG, UNKNOWN
     Route: 048
  2. PROMACTA [Suspect]
     Active Substance: ELTROMBOPAG OLAMINE
     Dosage: 25 MG, QD
     Route: 048
     Dates: start: 20221228

REACTIONS (14)
  - Colon cancer [Unknown]
  - Haematochezia [Unknown]
  - Hypersensitivity [Unknown]
  - Platelet count decreased [Unknown]
  - Blood test abnormal [Unknown]
  - Abdominal pain upper [Unknown]
  - Gastritis [Unknown]
  - Rhinorrhoea [Unknown]
  - Myalgia [Unknown]
  - Oropharyngeal pain [Unknown]
  - Headache [Unknown]
  - Arthralgia [Unknown]
  - Platelet disorder [Unknown]
  - Blood disorder [Unknown]
